FAERS Safety Report 24762144 (Version 2)
Quarter: 2025Q3

REPORT INFORMATION
  Report Type: Spontaneous
  Country: US (occurrence: US)
  Receive Date: 20241221
  Receipt Date: 20250802
  Transmission Date: 20251020
  Serious: Yes (Death, Hospitalization, Other)
  Sender: ALEXION PHARMACEUTICALS
  Company Number: US-ASTRAZENECA-202412USA016343US

PATIENT
  Sex: Female

DRUGS (8)
  1. SEROQUEL [Suspect]
     Active Substance: QUETIAPINE FUMARATE
  2. CLONAZEPAM [Suspect]
     Active Substance: CLONAZEPAM
  3. ALPRAZOLAM [Suspect]
     Active Substance: ALPRAZOLAM
  4. ESZOPICLONE [Suspect]
     Active Substance: ESZOPICLONE
  5. DIPHENHYDRAMINE [Suspect]
     Active Substance: DIPHENHYDRAMINE
  6. CLONIDINE [Suspect]
     Active Substance: CLONIDINE
  7. DEMANNOSE [Suspect]
     Active Substance: DEMANNOSE
  8. FERULIC ACID [Suspect]
     Active Substance: FERULIC ACID

REACTIONS (3)
  - Toxicity to various agents [Fatal]
  - Completed suicide [Fatal]
  - Cardio-respiratory arrest [Fatal]
